FAERS Safety Report 9881039 (Version 2)
Quarter: 2016Q4

REPORT INFORMATION
  Report Type: Spontaneous
  Country: US (occurrence: US)
  Receive Date: 20140207
  Receipt Date: 20161013
  Transmission Date: 20170207
  Serious: Yes (Death, Other)
  Sender: FDA-Public Use
  Company Number: US-ASTELLAS-2014US001120

PATIENT
  Age: 82 Year
  Sex: Male

DRUGS (1)
  1. XTANDI [Suspect]
     Active Substance: ENZALUTAMIDE
     Indication: HORMONE-REFRACTORY PROSTATE CANCER
     Route: 048

REACTIONS (2)
  - Death [Fatal]
  - Intestinal obstruction [Unknown]

NARRATIVE: CASE EVENT DATE: 201311
